FAERS Safety Report 10039325 (Version 3)
Quarter: 2014Q2

REPORT INFORMATION
  Report Type: Spontaneous
  Country: US (occurrence: US)
  Receive Date: 20140326
  Receipt Date: 20140428
  Transmission Date: 20141212
  Serious: No
  Sender: FDA-Public Use
  Company Number: US-PFIZER INC-2014072171

PATIENT
  Age: 38 Year
  Sex: Female

DRUGS (24)
  1. LYRICA [Suspect]
     Indication: FIBROMYALGIA
     Dosage: 150 MG, 2X/DAY
     Route: 048
  2. LYRICA [Suspect]
     Dosage: 75 MG, 2X/DAY
     Route: 048
  3. DICLOFENAC [Concomitant]
     Indication: ARTHRALGIA
     Dosage: 75 MG, 2X/DAY
  4. OXYCODONE [Concomitant]
     Indication: PAIN
     Dosage: 10 MG, 4X/DAY
  5. TIZANIDINE [Concomitant]
     Indication: MYALGIA
     Dosage: 4 MG, 1X/DAY
  6. ESTRADIOL [Concomitant]
     Indication: HORMONE REPLACEMENT THERAPY
     Dosage: 2 MG, 1X/DAY
  7. ELAVIL [Concomitant]
     Indication: MYALGIA
     Dosage: 100 MG, 1X/DAY
  8. ELAVIL [Concomitant]
     Indication: MIGRAINE
  9. OXYBUTYNIN [Concomitant]
     Indication: HYPERTONIC BLADDER
     Dosage: 5 MG, 1X/DAY
  10. BUSPIRONE [Concomitant]
     Indication: ANXIETY
     Dosage: 30 MG, 2X/DAY
  11. VALIUM [Concomitant]
     Indication: ANXIETY
     Dosage: 5 MG, AS NEEDED
  12. CYMBALTA [Concomitant]
     Indication: MYALGIA
     Dosage: 30 MG, 1X/DAY
  13. CYMBALTA [Concomitant]
     Indication: ANXIETY
  14. CYMBALTA [Concomitant]
     Indication: DEPRESSION
  15. OMEPRAZOLE [Concomitant]
     Indication: GASTROOESOPHAGEAL REFLUX DISEASE
     Dosage: 20 MG, 1X/DAY
  16. FLONASE [Concomitant]
     Indication: HYPERSENSITIVITY
     Dosage: UNK AS NEEDED
  17. FIBER [Concomitant]
     Dosage: UNK, 3X/DAY
  18. MAGNESIUM [Concomitant]
     Dosage: 400 MG, 1X/DAY
  19. STOOL SOFTENER [Concomitant]
     Dosage: UNK, 1X/DAY
  20. BIOTIN [Concomitant]
     Dosage: 5000 UG, 1X/DAY
  21. CALCIUM [Concomitant]
     Dosage: 1200 MG, 2X/DAY
  22. VITAMIN D [Concomitant]
     Dosage: 800 IU, 2X/DAY
  23. MILK THISTLE [Concomitant]
     Dosage: 1000 MG, 3X/DAY
  24. MULTIVITAMINS [Concomitant]
     Dosage: UNK

REACTIONS (2)
  - Weight increased [Unknown]
  - Drug dispensing error [Unknown]
